FAERS Safety Report 8011397-8 (Version None)
Quarter: 2011Q4

REPORT INFORMATION
  Report Type: 
  Country: None (occurrence: None)
  Receive Date: 20111228
  Receipt Date: 20111222
  Transmission Date: 20120403
  Serious: No
  Sender: FDA-Public Use
  Company Number: US-PFIZER INC-2011312766

PATIENT
  Sex: Male
  Weight: 93.878 kg

DRUGS (9)
  1. ACETYLSALICYLIC ACID [Concomitant]
     Indication: ANTICOAGULANT THERAPY
     Dosage: 81 MG, 1X/DAY
  2. METFORMIN [Concomitant]
     Indication: DIABETES MELLITUS
     Dosage: 1000 MG, 2X/DAY
  3. SIMVASTATIN [Concomitant]
     Dosage: 20 MG, 1X/DAY
  4. CENTRUM SILVER [Concomitant]
     Dosage: DAILY
  5. FISH OIL [Concomitant]
     Dosage: 300 MG, 1X/DAY
  6. VIAGRA [Suspect]
     Indication: ERECTILE DYSFUNCTION
     Dosage: 25 MG, AS NEEDED
     Route: 048
     Dates: start: 20111128, end: 20111129
  7. METOPROLOL [Concomitant]
     Indication: HYPERTENSION
     Dosage: 125 MG, UNK
     Dates: start: 20110101
  8. LOSARTAN POTASSIUM [Concomitant]
     Dosage: 50 MG, 1X/DAY
  9. HYDROCHLOROTHIAZIDE [Concomitant]
     Dosage: 25 MG, 1X/DAY

REACTIONS (1)
  - DRUG INEFFECTIVE [None]
